FAERS Safety Report 4704233-6 (Version None)
Quarter: 2005Q2

REPORT INFORMATION
  Report Type: 
  Country: None (occurrence: None)
  Receive Date: 20050627
  Receipt Date: 20041022
  Transmission Date: 20051028
  Serious: Yes (Hospitalization, Other)
  Sender: FDA-Public Use
  Company Number: US-JNJFOC-20040905557

PATIENT
  Age: 78 Year
  Sex: Male
  Weight: 72.5755 kg

DRUGS (12)
  1. DURAGESIC-100 [Suspect]
     Indication: PAIN
     Dosage: 25 UG/HR, 1 IN 72 HOUR, TRANSDERMAL
     Route: 062
     Dates: start: 20040812, end: 20041001
  2. ZOLOFT [Concomitant]
  3. NEURONTIN [Concomitant]
  4. LASIX [Concomitant]
  5. COREG [Concomitant]
  6. CARDIZEM [Concomitant]
  7. LORAZEPAM (LORAZEPAM) TABLETS [Concomitant]
  8. AMIODARONE (AMIDARONE) [Concomitant]
  9. DILANTIN [Concomitant]
  10. CLOPIDROGEL (CLOPIDOGREL) [Concomitant]
  11. LEVOTHYROXINE SODIUM [Concomitant]
  12. ZOCOR [Concomitant]

REACTIONS (2)
  - BRADYCARDIA [None]
  - OXYGEN SATURATION DECREASED [None]
